FAERS Safety Report 9119036 (Version 1)
Quarter: 2013Q1

REPORT INFORMATION
  Report Type: Spontaneous
  Country: DK (occurrence: None)
  Receive Date: 20130130
  Receipt Date: 20130130
  Transmission Date: 20140127
  Serious: Yes (Other)
  Sender: FDA-Public Use
  Company Number: DK-SEPTODONT-200500667

PATIENT
  Age: 67 Year
  Sex: Male

DRUGS (1)
  1. SEPTANEST (ARTICAINE HCL 4% AND EPINEPHRINE) [Suspect]
     Indication: LOCAL ANAESTHESIA
     Dosage: 3 CARTRIDGES OF 40 MG/ML + 5 UG/ML SEPTANEST
     Route: 004
     Dates: start: 20020430

REACTIONS (2)
  - Glossodynia [None]
  - Ageusia [None]
